FAERS Safety Report 22353362 (Version 1)
Quarter: 2023Q2

REPORT INFORMATION
  Report Type: Spontaneous
  Country: US (occurrence: US)
  Receive Date: 20230523
  Receipt Date: 20230523
  Transmission Date: 20230721
  Serious: No
  Sender: FDA-Public Use
  Company Number: US-PHARMAESSENTIA CORPORATION-US-2023-PEC-001300

PATIENT

DRUGS (2)
  1. BESREMI [Suspect]
     Active Substance: ROPEGINTERFERON ALFA-2B-NJFT
     Indication: Polycythaemia vera
     Dosage: 150 MCG, Q2W
     Route: 058
     Dates: start: 20230405
  2. BESREMI [Suspect]
     Active Substance: ROPEGINTERFERON ALFA-2B-NJFT
     Dosage: 125 MCG
     Route: 065
     Dates: start: 20230419

REACTIONS (9)
  - Platelet count increased [Unknown]
  - Incorrect dose administered [Unknown]
  - Wrong technique in product usage process [Unknown]
  - Anxiety [Unknown]
  - Emotional disorder [Unknown]
  - Loss of personal independence in daily activities [Unknown]
  - Dizziness [Unknown]
  - Influenza like illness [Unknown]
  - Depression [Unknown]
